FAERS Safety Report 20911817 (Version 4)
Quarter: 2023Q2

REPORT INFORMATION
  Report Type: Spontaneous
  Country: US (occurrence: US)
  Receive Date: 20220603
  Receipt Date: 20230413
  Transmission Date: 20230722
  Serious: Yes (Other)
  Sender: FDA-Public Use
  Company Number: US-PFIZER INC-202200791583

PATIENT
  Age: 86 Year
  Sex: Female

DRUGS (1)
  1. TIKOSYN [Suspect]
     Active Substance: DOFETILIDE
     Dosage: QUANTITY FOR 90 DAYS: 180
     Route: 048

REACTIONS (6)
  - Sinus node dysfunction [Unknown]
  - Atrial fibrillation [Unknown]
  - Blood glucose increased [Unknown]
  - Product prescribing error [Unknown]
  - Product dispensing error [Unknown]
  - Blood urea nitrogen/creatinine ratio increased [Unknown]
